FAERS Safety Report 9053844 (Version 1)
Quarter: 2013Q1

REPORT INFORMATION
  Report Type: Spontaneous
  Country: PL (occurrence: PL)
  Receive Date: 20130207
  Receipt Date: 20130207
  Transmission Date: 20140127
  Serious: Yes (Death, Hospitalization)
  Sender: FDA-Public Use
  Company Number: PL-GLAXOSMITHKLINE-B0865464A

PATIENT
  Age: 56 Year
  Sex: Female

DRUGS (6)
  1. MELPHALAN [Suspect]
     Indication: PLASMA CELL MYELOMA
     Route: 065
  2. VINCRISTINE [Suspect]
     Indication: PLASMA CELL MYELOMA
     Route: 065
  3. CYCLOPHOSPHAMIDE [Suspect]
     Indication: PLASMA CELL MYELOMA
     Route: 065
  4. PREDNISONE [Concomitant]
     Indication: PLASMA CELL MYELOMA
     Route: 065
  5. DEXAMETHASONE [Concomitant]
     Indication: PLASMA CELL MYELOMA
     Route: 065
  6. THALIDOMIDE [Concomitant]
     Indication: PLASMA CELL MYELOMA
     Route: 065

REACTIONS (9)
  - Acute lymphocytic leukaemia [Not Recovered/Not Resolved]
  - Cardiopulmonary failure [Fatal]
  - Oedema [Unknown]
  - Dyspnoea [Unknown]
  - Splenomegaly [Unknown]
  - Tachypnoea [Unknown]
  - Pleural rub [Unknown]
  - Deep vein thrombosis [Unknown]
  - Pulmonary embolism [Unknown]
